FAERS Safety Report 4338902-7 (Version None)
Quarter: 2004Q2

REPORT INFORMATION
  Report Type: 
  Country: None (occurrence: None)
  Receive Date: 20040409
  Receipt Date: 20040323
  Transmission Date: 20050107
  Serious: Yes (Other)
  Sender: FDA-Public Use
  Company Number: 2004207775MY

PATIENT
  Age: 70 Year
  Sex: Male

DRUGS (2)
  1. CELEBREX [Suspect]
     Indication: BIOPSY
     Dosage: 200 MG, BID, ORAL
     Route: 048
  2. TRAVID [Concomitant]

REACTIONS (3)
  - LIP BLISTER [None]
  - SKIN ULCER [None]
  - SWELLING FACE [None]
